FAERS Safety Report 4292639-1 (Version None)
Quarter: 2004Q1

REPORT INFORMATION
  Report Type: 
  Country: None (occurrence: None)
  Receive Date: 20040126
  Receipt Date: 20031107
  Transmission Date: 20041129
  Serious: No
  Sender: FDA-Public Use
  Company Number: USA031048906

PATIENT
  Age: 80 Year
  Sex: Female

DRUGS (5)
  1. FORTEO [Suspect]
     Indication: OSTEOPOROSIS
     Dosage: 20 UG/DAY
     Dates: start: 20030301, end: 20031001
  2. FORTEO [Suspect]
     Indication: PELVIC FRACTURE
     Dosage: 20 UG/DAY
     Dates: start: 20030301, end: 20031001
  3. LEVOXYL [Concomitant]
  4. LISINOPRIL [Concomitant]
  5. FOSAMAX [Concomitant]

REACTIONS (5)
  - ARTHRALGIA [None]
  - BACK PAIN [None]
  - BLOOD CALCIUM INCREASED [None]
  - JOINT RANGE OF MOTION DECREASED [None]
  - JOINT SWELLING [None]
